FAERS Safety Report 26117766 (Version 4)
Quarter: 2025Q4

REPORT INFORMATION
  Report Type: Spontaneous
  Country: GB (occurrence: GB)
  Receive Date: 20251203
  Receipt Date: 20251224
  Transmission Date: 20260118
  Serious: Yes (Hospitalization, Other)
  Sender: MYLAN
  Company Number: GB-MYLANLABS-2025M1097334

PATIENT
  Age: 66 Year
  Sex: Female
  Weight: 60.7 kg

DRUGS (5)
  1. CLOZARIL [Suspect]
     Active Substance: CLOZAPINE
     Indication: Schizophrenia
     Dosage: UNK
     Route: 061
  2. LITHIUM CARBONATE [Concomitant]
     Active Substance: LITHIUM CARBONATE
     Dosage: UNK, PM (NOCTE)
     Route: 061
  3. EPILIM [Concomitant]
     Active Substance: VALPROATE SODIUM
     Dosage: UNK, BID (300 AND 500 MG BD)
     Route: 061
  4. PROMETHAZINE [Concomitant]
     Active Substance: PROMETHAZINE HYDROCHLORIDE
     Dosage: UNK, PM (NOCTE)
  5. CLONAZEPAM [Concomitant]
     Active Substance: CLONAZEPAM
     Dosage: UNK, PRN (PRN-BD)

REACTIONS (9)
  - Hospitalisation [Unknown]
  - Neutropenia [Recovered/Resolved]
  - Pain [Recovered/Resolved]
  - Mood swings [Unknown]
  - Heart rate decreased [Unknown]
  - Eosinophil count decreased [Unknown]
  - White blood cell count decreased [Recovered/Resolved]
  - Nausea [Recovered/Resolved]
  - Vomiting [Recovered/Resolved]

NARRATIVE: CASE EVENT DATE: 20251029
